FAERS Safety Report 6832556-3 (Version None)
Quarter: 2010Q3

REPORT INFORMATION
  Report Type: 
  Country: None (occurrence: None)
  Receive Date: 20100712
  Receipt Date: 20070313
  Transmission Date: 20110219
  Serious: No
  Sender: FDA-Public Use
  Company Number: US-PFIZER INC-2007020282

PATIENT
  Sex: Female
  Weight: 76.66 kg

DRUGS (2)
  1. CHANTIX [Suspect]
     Indication: SMOKING CESSATION THERAPY
     Dates: start: 20070311
  2. VALSARTAN [Concomitant]
     Indication: HYPERTENSION

REACTIONS (2)
  - INITIAL INSOMNIA [None]
  - INSOMNIA [None]
